FAERS Safety Report 6402657-2 (Version None)
Quarter: 2009Q4

REPORT INFORMATION
  Report Type: 
  Country: None (occurrence: None)
  Receive Date: 20091009
  Receipt Date: 20090930
  Transmission Date: 20100525
  Serious: Yes (Life-Threatening)
  Sender: FDA-Public Use
  Company Number: ADR34392009

PATIENT
  Age: 85 Year
  Sex: Female

DRUGS (3)
  1. CIPROFLOXACIN HYDROCHLORIDE [Suspect]
  2. INDAPAMIDE [Concomitant]
  3. LERCANIDIPINE [Concomitant]

REACTIONS (1)
  - OLIGURIA [None]
